FAERS Safety Report 22280579 (Version 1)
Quarter: 2023Q2

REPORT INFORMATION
  Report Type: Spontaneous
  Country: GB (occurrence: GB)
  Receive Date: 20230503
  Receipt Date: 20230503
  Transmission Date: 20230721
  Serious: Yes (Hospitalization)
  Sender: FDA-Public Use
  Company Number: GB-VERTEX PHARMACEUTICALS-2023-006272

PATIENT
  Age: 48 Year
  Sex: Male

DRUGS (1)
  1. ELEXACAFTOR\IVACAFTOR\TEZACAFTOR [Suspect]
     Active Substance: ELEXACAFTOR\IVACAFTOR\TEZACAFTOR
     Indication: Cystic fibrosis
     Dosage: 1TAB(75MG IVA/50MG TEZA/100MG ELEXA, AM AND THEN 2 TABS PM, ON ALTERNATE DAYS
     Route: 048

REACTIONS (2)
  - Chest discomfort [Unknown]
  - Cystic fibrosis [Unknown]
